FAERS Safety Report 5579162-9 (Version None)
Quarter: 2008Q1

REPORT INFORMATION
  Report Type: 
  Country: None (occurrence: None)
  Receive Date: 20080102
  Receipt Date: 20071219
  Transmission Date: 20080703
  Serious: Yes (Hospitalization)
  Sender: FDA-Public Use
  Company Number: US-AMGEN-QUU257595

PATIENT
  Sex: Female
  Weight: 113.5 kg

DRUGS (2)
  1. ENBREL [Suspect]
     Indication: PSORIATIC ARTHROPATHY
     Route: 058
     Dates: start: 20031001
  2. ENBREL [Suspect]
     Indication: PSORIASIS

REACTIONS (8)
  - BRONCHITIS [None]
  - BURSA DISORDER [None]
  - EAR INFECTION [None]
  - INJECTION SITE BRUISING [None]
  - INJECTION SITE HAEMORRHAGE [None]
  - INJECTION SITE PAIN [None]
  - OBESITY [None]
  - ROTATOR CUFF SYNDROME [None]
